FAERS Safety Report 8399385-3 (Version None)
Quarter: 2012Q2

REPORT INFORMATION
  Report Type: 
  Country: None (occurrence: None)
  Receive Date: 20120323
  Receipt Date: 20110107
  Transmission Date: 20120825
  Serious: Yes (Hospitalization)
  Sender: FDA-Public Use
  Company Number: 163-21880-11010761

PATIENT
  Age: 69 Year
  Sex: Female
  Weight: 43.5453 kg

DRUGS (21)
  1. DEXAMETHASONE [Concomitant]
  2. KLOR-CON [Concomitant]
  3. CALTRATE D (CALCIUM CARBONATE) [Concomitant]
  4. CLONAZEPAM [Concomitant]
  5. MEGESTROL ACETATE [Concomitant]
  6. METAMUCIL (PSYLLIUM) [Concomitant]
  7. METAXALONE [Concomitant]
  8. REVLIMID [Suspect]
     Indication: MULTIPLE MYELOMA
     Dosage: 10 MG, QD, PO
     Route: 048
     Dates: start: 20090911
  9. ASPIRIN [Concomitant]
  10. ZIPRASIDONE HYDROCHLORIDE (GEODON) [Concomitant]
  11. MULTIVITAMIN [Concomitant]
  12. OXYCODONE HCL [Concomitant]
  13. PROPOXYPHENE (DEXTROPOXYPHENE) [Concomitant]
  14. CALCIUM CARBONATE [Concomitant]
  15. ASPIRIN [Concomitant]
  16. TRAZODONE HCL [Concomitant]
  17. FUROSEMIDE [Concomitant]
  18. LISINOPRIL [Concomitant]
  19. CALTRATE D (CALCIUM CARBONATE) [Concomitant]
  20. LEVETIRACETAM [Concomitant]
  21. OMEPRAZOLEMEPRAZOLE) [Concomitant]

REACTIONS (4)
  - CARDIAC FAILURE CONGESTIVE [None]
  - FLUID RETENTION [None]
  - DYSPNOEA [None]
  - HYPERHIDROSIS [None]
